FAERS Safety Report 8174231-1 (Version None)
Quarter: 2012Q1

REPORT INFORMATION
  Report Type: 
  Country: None (occurrence: None)
  Receive Date: 20120229
  Receipt Date: 20120223
  Transmission Date: 20120608
  Serious: Yes (Hospitalization)
  Sender: FDA-Public Use
  Company Number: FR-BAYER-2012-018808

PATIENT
  Age: 64 Year
  Sex: Female

DRUGS (12)
  1. FENOFIBRATE [Concomitant]
     Dosage: 1 DF, QD
     Route: 048
  2. GLUCOPHAGE [Concomitant]
     Dosage: 1 DF, TID
     Route: 048
  3. TENORMIN [Concomitant]
     Indication: HYPERTENSION
     Dosage: 1 DF, QD
     Route: 048
  4. POTASSIUM CHLORIDE [Concomitant]
     Dosage: 4/DAY
     Dates: start: 20111206
  5. POTASSIUM CHLORIDE [Concomitant]
     Dosage: 2/DAY
  6. ACARBOSE [Suspect]
     Indication: DIABETES MELLITUS
     Dosage: 1 DF, TID
     Route: 048
     Dates: end: 20111207
  7. OXAZEPAM [Concomitant]
     Dosage: 1 DF, QD
     Route: 048
  8. DIAMICRON [Concomitant]
     Dosage: 1/DAY
     Dates: start: 20111208
  9. TENORETIC 100 [Interacting]
     Indication: HYPERTENSION
     Dosage: 1 DF, QD
     Route: 048
     Dates: start: 20100101, end: 20111205
  10. ASPIRIN [Concomitant]
     Dosage: 1 DF, QD
     Route: 048
  11. INDAPAMIDE [Interacting]
     Indication: HYPERTENSION
     Dosage: 1 DF, QD
     Dates: start: 20100101, end: 20111205
  12. AMLODIPINE BESYLATE [Concomitant]
     Dosage: 1 DF, QD
     Route: 048

REACTIONS (3)
  - HYPOKALAEMIA [None]
  - HYPONATRAEMIA [None]
  - HYPOCHLORAEMIA [None]
